FAERS Safety Report 6247965-3 (Version None)
Quarter: 2009Q2

REPORT INFORMATION
  Report Type: 
  Country: None (occurrence: None)
  Receive Date: 20090626
  Receipt Date: 20090619
  Transmission Date: 20091009
  Serious: Yes (Disabling)
  Sender: FDA-Public Use
  Company Number: CH-GENENTECH-285574

PATIENT
  Sex: Female

DRUGS (7)
  1. HERCEPTIN [Suspect]
     Indication: BREAST CANCER
     Dosage: UNK
     Route: 042
     Dates: start: 20020605
  2. HERCEPTIN [Suspect]
     Dosage: 100 MG, 1/MONTH
     Route: 042
     Dates: start: 20021211
  3. HERCEPTIN [Suspect]
     Dosage: 100 MG, Q2M
     Route: 042
     Dates: start: 20040401
  4. HERCEPTIN [Suspect]
     Dosage: 100 MG, Q3M
     Route: 042
     Dates: start: 20090601
  5. TAXOL [Concomitant]
     Indication: DRUG USE FOR UNKNOWN INDICATION
     Dosage: UNK
     Dates: start: 20020605
  6. ADRIAMYCIN RDF [Concomitant]
     Indication: DRUG USE FOR UNKNOWN INDICATION
     Dosage: UNK
     Dates: start: 20010309, end: 20010426
  7. CYCLOPHOSPHAMIDE [Concomitant]
     Indication: DRUG USE FOR UNKNOWN INDICATION
     Dosage: UNK
     Dates: start: 20010309, end: 20010426

REACTIONS (1)
  - MACULAR DEGENERATION [None]
